FAERS Safety Report 9288987 (Version 2)
Quarter: 2013Q2

REPORT INFORMATION
  Report Type: Spontaneous
  Country: US (occurrence: None)
  Receive Date: 20130509
  Receipt Date: 20130625
  Transmission Date: 20140414
  Serious: Yes (Hospitalization)
  Sender: FDA-Public Use
  Company Number: SP06638

PATIENT
  Age: 69 Year
  Sex: Male
  Weight: 96.62 kg

DRUGS (8)
  1. MOVIPREP [Suspect]
     Indication: BOWEL PREPARATION
     Route: 048
     Dates: start: 20130421, end: 20130422
  2. HYDROCHLOROTHIAZIDE [Concomitant]
  3. ADVAIR [Concomitant]
  4. SPIRIVA [Concomitant]
  5. ALBUTEROL [Suspect]
  6. CRESTOR [Concomitant]
  7. FLUTICASONE [Concomitant]
  8. CLARITIN [Concomitant]

REACTIONS (2)
  - Atrial fibrillation [None]
  - Heart rate increased [None]
